FAERS Safety Report 9202243 (Version 3)
Quarter: 2013Q2

REPORT INFORMATION
  Report Type: Spontaneous
  Country: US (occurrence: US)
  Receive Date: 20130401
  Receipt Date: 20130610
  Transmission Date: 20140414
  Serious: Yes (Hospitalization)
  Sender: FDA-Public Use
  Company Number: US-B.I. PHARMACEUTICALS,INC./RIDGEFIELD-2013-BI-08227BP

PATIENT
  Age: 73 Year
  Sex: Female
  Weight: 51.71 kg

DRUGS (18)
  1. AGGRENOX [Suspect]
     Indication: CEREBROVASCULAR ACCIDENT PROPHYLAXIS
     Dosage: STRENGTH: 25MG/ 200MG AT A DAILY DOSE: 50 MG/ 400 MG
     Route: 048
     Dates: start: 201212, end: 20130128
  2. AGGRENOX [Suspect]
     Indication: CEREBROVASCULAR ACCIDENT
     Dosage: STRENGTH: 25MG/ 200MG
     Route: 048
     Dates: start: 20130209, end: 20130226
  3. CRESTOR [Concomitant]
     Indication: BLOOD CHOLESTEROL INCREASED
     Route: 048
  4. TRILIPIX [Concomitant]
     Indication: HYPERLIPIDAEMIA
     Route: 048
  5. ATENOLOL [Concomitant]
     Indication: HYPERTENSION
  6. LOSARTAN [Concomitant]
     Indication: HYPERTENSION
     Route: 048
  7. BONIVA [Concomitant]
     Indication: OSTEOPOROSIS
  8. HCTZ [Concomitant]
     Indication: HYPERTENSION
  9. LEVOTHYROXIN [Concomitant]
     Indication: HYPOTHYROIDISM
  10. ASA [Concomitant]
     Dosage: 81 MG
     Route: 048
  11. ADVAIR [Concomitant]
     Route: 055
  12. PLAVIX [Concomitant]
     Route: 048
  13. AMLODIPINE [Concomitant]
     Route: 048
  14. SINGULAIR [Concomitant]
     Route: 048
  15. DIGOXIN [Concomitant]
     Route: 048
  16. PANCREATIN [Concomitant]
     Route: 048
  17. ZINC [Concomitant]
     Route: 048
  18. CARVEDILOL [Concomitant]
     Route: 048

REACTIONS (5)
  - Pancreatitis [Recovered/Resolved]
  - Blood calcium increased [Recovered/Resolved]
  - Pancreatitis acute [Recovered/Resolved]
  - Headache [Recovered/Resolved]
  - Diarrhoea [Recovered/Resolved]
